FAERS Safety Report 8314927-1 (Version None)
Quarter: 2012Q2

REPORT INFORMATION
  Report Type: 
  Country: None (occurrence: None)
  Receive Date: 20120426
  Receipt Date: 20120416
  Transmission Date: 20120825
  Serious: Yes (Other)
  Sender: FDA-Public Use
  Company Number: US-JNJFOC-20120407408

PATIENT
  Sex: Female
  Weight: 59.88 kg

DRUGS (5)
  1. REMICADE [Suspect]
     Indication: COLITIS
     Route: 042
     Dates: start: 20110801, end: 20120401
  2. REMICADE [Suspect]
     Route: 042
     Dates: start: 20120401
  3. REMICADE [Suspect]
     Route: 042
     Dates: start: 20110801, end: 20120401
  4. ASACOL [Concomitant]
     Indication: COLITIS
     Route: 065
     Dates: start: 20110101, end: 20120401
  5. REMICADE [Suspect]
     Indication: CROHN'S DISEASE
     Route: 042
     Dates: start: 20120401

REACTIONS (6)
  - CROHN'S DISEASE [None]
  - EATING DISORDER [None]
  - MALAISE [None]
  - DRUG INEFFECTIVE [None]
  - WEIGHT DECREASED [None]
  - DIARRHOEA [None]
